FAERS Safety Report 23302194 (Version 1)
Quarter: 2023Q4

REPORT INFORMATION
  Report Type: Spontaneous
  Country: US (occurrence: None)
  Receive Date: 20231214
  Receipt Date: 20231214
  Transmission Date: 20240110
  Serious: Yes (Other)
  Sender: FDA-Public Use
  Company Number: None

PATIENT
  Age: 69 Year
  Sex: Male
  Weight: 79 kg

DRUGS (1)
  1. TPOXX [Suspect]
     Active Substance: TECOVIRIMAT
     Indication: Orthopoxvirus test positive
     Dosage: FREQUENCY : DAILY;?
     Route: 042
     Dates: start: 20231208

REACTIONS (2)
  - Chills [None]
  - Infusion related reaction [None]

NARRATIVE: CASE EVENT DATE: 20231209
